FAERS Safety Report 10331139 (Version 1)
Quarter: 2014Q3

REPORT INFORMATION
  Report Type: Spontaneous
  Country: US (occurrence: None)
  Receive Date: 20140718
  Receipt Date: 20140718
  Transmission Date: 20150326
  Serious: Yes (Other)
  Sender: FDA-Public Use
  Company Number: UNT-2014-001217

PATIENT
  Age: 68 Year
  Sex: Female
  Weight: 68 kg

DRUGS (2)
  1. REVATIO (SILDENAFIL CITRATE) [Concomitant]
  2. REMODULIN [Suspect]
     Active Substance: TREPROSTINIL
     Indication: COR PULMONALE CHRONIC
     Dosage: 0.040 UG/KG/MIN, CONTINUING, SUBCUTANEOUS
     Dates: start: 20131217

REACTIONS (13)
  - Abdominal discomfort [None]
  - Muscular weakness [None]
  - Chest discomfort [None]
  - Dyspnoea [None]
  - Hypoaesthesia [None]
  - Decreased appetite [None]
  - Headache [None]
  - VIIth nerve paralysis [None]
  - Sleep disorder [None]
  - Pain [None]
  - Back pain [None]
  - Fall [None]
  - Peripheral swelling [None]

NARRATIVE: CASE EVENT DATE: 20140706
